FAERS Safety Report 4422455-9 (Version None)
Quarter: 2004Q3

REPORT INFORMATION
  Report Type: 
  Country: None (occurrence: None)
  Receive Date: 20040806
  Receipt Date: 20040715
  Transmission Date: 20050211
  Serious: Yes (Hospitalization, Other)
  Sender: FDA-Public Use
  Company Number: USA040772652

PATIENT
  Age: 77 Year
  Sex: Female
  Weight: 43 kg

DRUGS (10)
  1. FORTEO [Suspect]
     Indication: OSTEOPOROSIS
     Dosage: 20 UG/1 DAY
     Dates: start: 20031001
  2. THEOPHYLLINE [Concomitant]
  3. ALBUTEROL [Concomitant]
  4. SYNTHROID [Concomitant]
  5. DETROL LA (TOLTERODINE L-TARTRATE) [Concomitant]
  6. MULTIVITAMIN [Concomitant]
  7. VITAMIN C [Concomitant]
  8. VITAMIN E [Concomitant]
  9. CALCIUM [Concomitant]
  10. ASPIRIN [Concomitant]

REACTIONS (7)
  - EMPHYSEMA [None]
  - HOARSENESS [None]
  - PANIC DISORDER [None]
  - PNEUMONIA [None]
  - PULMONARY CONGESTION [None]
  - SOMNOLENCE [None]
  - WEIGHT DECREASED [None]
